FAERS Safety Report 23733195 (Version 2)
Quarter: 2024Q2

REPORT INFORMATION
  Report Type: Spontaneous
  Country: IT (occurrence: IT)
  Receive Date: 20240411
  Receipt Date: 20240610
  Transmission Date: 20240716
  Serious: Yes (Other)
  Sender: FDA-Public Use
  Company Number: None

PATIENT
  Age: 40 Year
  Sex: Female

DRUGS (1)
  1. CLINDAMYCIN [Suspect]
     Active Substance: CLINDAMYCIN
     Indication: Bacterial vulvovaginitis
     Dosage: 150 MG
     Route: 048
     Dates: start: 20240314, end: 20240315

REACTIONS (7)
  - Laryngeal oedema [Recovered/Resolved]
  - Pruritus [Recovered/Resolved]
  - Catarrh [Recovered/Resolved]
  - Sensation of foreign body [Recovered/Resolved]
  - Throat irritation [Unknown]
  - Oral pruritus [Unknown]
  - Productive cough [Unknown]

NARRATIVE: CASE EVENT DATE: 20240315
